FAERS Safety Report 24968346 (Version 2)
Quarter: 2025Q3

REPORT INFORMATION
  Report Type: Spontaneous
  Country: US (occurrence: US)
  Receive Date: 20250214
  Receipt Date: 20250810
  Transmission Date: 20251021
  Serious: No
  Sender: ALEXION PHARMACEUTICALS
  Company Number: US-AstraZeneca-CH-00741659A

PATIENT
  Sex: Female

DRUGS (2)
  1. LYNPARZA [Suspect]
     Active Substance: OLAPARIB
     Indication: Ovarian cancer
     Dates: start: 20240605, end: 2024
  2. LYNPARZA [Suspect]
     Active Substance: OLAPARIB

REACTIONS (2)
  - Joint swelling [Unknown]
  - Blood creatinine increased [Unknown]
